FAERS Safety Report 21400849 (Version 3)
Quarter: 2022Q4

REPORT INFORMATION
  Report Type: Report from Study
  Country: JP (occurrence: JP)
  Receive Date: 20221003
  Receipt Date: 20221021
  Transmission Date: 20230112
  Serious: Yes (Death, Hospitalization, Other)
  Sender: FDA-Public Use
  Company Number: JP-TAKEDA-2022TJP038998

PATIENT
  Age: 49 Year
  Sex: Male

DRUGS (4)
  1. TEDUGLUTIDE [Suspect]
     Active Substance: TEDUGLUTIDE
     Indication: Short-bowel syndrome
     Dosage: UNK
     Route: 058
     Dates: start: 20220317, end: 20220506
  2. TEDUGLUTIDE [Suspect]
     Active Substance: TEDUGLUTIDE
     Indication: Short-bowel syndrome
     Dosage: UNK
     Route: 058
     Dates: start: 20220317, end: 20220506
  3. TEDUGLUTIDE [Suspect]
     Active Substance: TEDUGLUTIDE
     Indication: Short-bowel syndrome
     Dosage: UNK
     Route: 058
     Dates: start: 20220317, end: 20220506
  4. TEDUGLUTIDE [Suspect]
     Active Substance: TEDUGLUTIDE
     Indication: Short-bowel syndrome
     Dosage: UNK
     Route: 058
     Dates: start: 20220317, end: 20220506

REACTIONS (11)
  - Death [Fatal]
  - Septic shock [Unknown]
  - Renal impairment [Unknown]
  - Ureterolithiasis [Unknown]
  - Pyelonephritis [Unknown]
  - Malaise [Not Recovered/Not Resolved]
  - Face oedema [Unknown]
  - Urine output decreased [Unknown]
  - Pyrexia [Unknown]
  - Stoma site oedema [Recovering/Resolving]
  - Stoma complication [Unknown]

NARRATIVE: CASE EVENT DATE: 20220324
